FAERS Safety Report 7302581-7 (Version None)
Quarter: 2011Q1

REPORT INFORMATION
  Report Type: 
  Country: None (occurrence: None)
  Receive Date: 20110218
  Receipt Date: 20110216
  Transmission Date: 20110831
  Serious: No
  Sender: FDA-Public Use
  Company Number: US-PFIZER INC-2011034781

PATIENT
  Sex: Female
  Weight: 58 kg

DRUGS (12)
  1. CRANBERRY [Concomitant]
     Dosage: UNK
  2. GLUCOSAMINE [Concomitant]
     Dosage: UNK
  3. LIPITOR [Suspect]
     Indication: BLOOD CHOLESTEROL INCREASED
     Dosage: 40 MG, DAILY
     Route: 048
  4. ZOLEDRONIC ACID [Concomitant]
     Indication: OSTEOPOROSIS
     Dosage: UNK
  5. LEVOTHYROXINE [Concomitant]
     Dosage: UNK
  6. MULTI-VITAMINS [Concomitant]
     Dosage: UNK
  7. ASPIRIN [Concomitant]
     Dosage: UNK
  8. ATACAND [Concomitant]
     Indication: HYPERTENSION
     Dosage: UNK
  9. FUROSEMIDE [Concomitant]
     Indication: HYPERTENSION
     Dosage: UNK
  10. CALCIUM WITH VITAMIN D [Concomitant]
     Dosage: UNK
  11. PSYLLIUM [Concomitant]
     Dosage: UNK
  12. METOPROLOL [Concomitant]
     Indication: HYPERTENSION
     Dosage: UNK

REACTIONS (1)
  - MYALGIA [None]
